FAERS Safety Report 25973576 (Version 1)
Quarter: 2025Q4

REPORT INFORMATION
  Report Type: Spontaneous
  Country: CN (occurrence: CN)
  Receive Date: 20251029
  Receipt Date: 20251029
  Transmission Date: 20260118
  Serious: Yes (Hospitalization, Other)
  Sender: ALKEM
  Company Number: CN-ALKEM LABORATORIES LIMITED-CN-ALKEM-2025-11493

PATIENT
  Age: 59 Year
  Sex: Male

DRUGS (2)
  1. CAPECITABINE [Suspect]
     Active Substance: CAPECITABINE
     Indication: Ductal adenocarcinoma of pancreas
     Dosage: 1.5 GRAM, BID (FOR 14 CONSECUTIVE DAYS)
     Route: 048
     Dates: start: 20231012
  2. SINTILIMAB [Suspect]
     Active Substance: SINTILIMAB
     Indication: Ductal adenocarcinoma of pancreas
     Dosage: 200 MILLIGRAM (ON DAY 1)
     Route: 042
     Dates: start: 20231012

REACTIONS (1)
  - Small intestinal obstruction [Not Recovered/Not Resolved]
